FAERS Safety Report 9335112 (Version 3)
Quarter: 2013Q3

REPORT INFORMATION
  Report Type: Spontaneous
  Country: JP (occurrence: JP)
  Receive Date: 20130606
  Receipt Date: 20130816
  Transmission Date: 20140515
  Serious: Yes (Other)
  Sender: FDA-Public Use
  Company Number: JP-SANOFI-AVENTIS-2013SA055395

PATIENT
  Age: 73 Year
  Sex: Female
  Weight: 37.8 kg

DRUGS (8)
  1. APIDRA SOLOSTAR [Suspect]
     Indication: TYPE 2 DIABETES MELLITUS
     Route: 058
     Dates: start: 20130401, end: 20130425
  2. APIDRA SOLOSTAR [Suspect]
     Indication: KETOACIDOSIS
     Route: 058
     Dates: start: 20130401, end: 20130425
  3. SOLOSTAR [Concomitant]
     Indication: DEVICE THERAPY
     Dates: start: 20130401, end: 20130425
  4. LEVEMIR [Concomitant]
     Indication: TYPE 2 DIABETES MELLITUS
     Dates: start: 20130402
  5. RHEUMATREX [Concomitant]
     Indication: RHEUMATOID ARTHRITIS
  6. AZULFIDINE [Concomitant]
     Indication: RHEUMATOID ARTHRITIS
  7. PREDONINE [Concomitant]
     Indication: RHEUMATOID ARTHRITIS
  8. THYRADIN [Concomitant]
     Indication: HYPOTHYROIDISM

REACTIONS (7)
  - Liver disorder [Recovered/Resolved]
  - Aspartate aminotransferase increased [Recovered/Resolved]
  - Alanine aminotransferase increased [Recovered/Resolved]
  - Blood lactate dehydrogenase increased [Recovered/Resolved]
  - Gamma-glutamyltransferase increased [Recovered/Resolved]
  - Hepatomegaly [Recovered/Resolved]
  - Malaise [Recovered/Resolved]
